FAERS Safety Report 12478289 (Version 1)
Quarter: 2016Q2

REPORT INFORMATION
  Report Type: Other
  Country: GB (occurrence: GB)
  Receive Date: 20160617
  Receipt Date: 20160617
  Transmission Date: 20160815
  Serious: Yes (Hospitalization)
  Sender: FDA-Public Use
  Company Number: GB-TAKEDA-2016TUS010207

PATIENT
  Age: 57 Year
  Sex: Male
  Weight: 85.5 kg

DRUGS (10)
  1. BENDAMUSTINE [Suspect]
     Active Substance: BENDAMUSTINE
     Indication: NON-HODGKIN^S LYMPHOMA
     Dosage: UNK
     Route: 042
     Dates: start: 20140214
  2. COTRIMOXAZOLE [Suspect]
     Active Substance: SULFAMETHOXAZOLE\TRIMETHOPRIM
     Indication: PRODUCT USED FOR UNKNOWN INDICATION
     Dosage: UNK
     Route: 065
     Dates: start: 20140214, end: 20140225
  3. FEBUXOSTAT. [Suspect]
     Active Substance: FEBUXOSTAT
     Indication: PRODUCT USED FOR UNKNOWN INDICATION
     Dosage: UNK
     Route: 065
     Dates: start: 20140213, end: 20140225
  4. DOMPERIDON                         /00498201/ [Concomitant]
     Dosage: UNK
     Dates: start: 20140213
  5. SERETIDE [Concomitant]
     Active Substance: FLUTICASONE PROPIONATE\SALMETEROL XINAFOATE
     Dosage: UNK
  6. MABTHERA [Suspect]
     Active Substance: RITUXIMAB
     Indication: NON-HODGKIN^S LYMPHOMA
     Dosage: 770 MG, UNK
     Route: 042
     Dates: start: 20140214
  7. SALMETEROL [Concomitant]
     Active Substance: SALMETEROL
     Dosage: UNK
  8. FLUTICASONE [Concomitant]
     Active Substance: FLUTICASONE\FLUTICASONE PROPIONATE
     Dosage: UNK
  9. IDELALISIB [Suspect]
     Active Substance: IDELALISIB
     Indication: NON-HODGKIN^S LYMPHOMA
     Dosage: UNK
     Route: 048
     Dates: start: 20140212, end: 20140227
  10. ACICLOVIR [Concomitant]
     Active Substance: ACYCLOVIR
     Dosage: UNK
     Dates: start: 20140213

REACTIONS (3)
  - Rash [Recovered/Resolved with Sequelae]
  - Pyrexia [Recovered/Resolved]
  - Hypersensitivity [Recovered/Resolved]

NARRATIVE: CASE EVENT DATE: 20140224
